FAERS Safety Report 9468146 (Version 2)
Quarter: 2014Q4

REPORT INFORMATION
  Report Type: Spontaneous
  Country: US (occurrence: None)
  Receive Date: 20130816
  Receipt Date: 20141209
  Transmission Date: 20150529
  Serious: Yes (Death, Life-Threatening, Hospitalization)
  Sender: FDA-Public Use
  Company Number: 1713747-2013-99933

PATIENT
  Age: 71 Year
  Sex: Female
  Weight: 68 kg

DRUGS (5)
  1. 0.9% SODIUM CHLORIDE INJECTION, USP IN MINI-BAG PLUS CONTAINER [Suspect]
     Active Substance: SODIUM CHLORIDE
     Indication: CHRONIC KIDNEY DISEASE
     Dosage: HEMODIALYSIS
     Dates: start: 20130719
  2. 2008K HEMODIALYSIS MACHINE [Concomitant]
  3. DIALYZER [Concomitant]
  4. CONCENTRATED ASPIRIN FREE INFANTS [Concomitant]
     Active Substance: ACETAMINOPHEN
  5. BLOODLINES [Concomitant]

REACTIONS (5)
  - Unresponsive to stimuli [None]
  - Cardio-respiratory arrest [None]
  - Procedural complication [None]
  - Infusion related reaction [None]
  - Blood pressure fluctuation [None]

NARRATIVE: CASE EVENT DATE: 20130729
